FAERS Safety Report 17473664 (Version 1)
Quarter: 2020Q1

REPORT INFORMATION
  Report Type: Spontaneous
  Country: CH (occurrence: CH)
  Receive Date: 20200228
  Receipt Date: 20200228
  Transmission Date: 20200409
  Serious: Yes (Death, Hospitalization)
  Sender: FDA-Public Use
  Company Number: NVSC2020CH056937

PATIENT
  Sex: Female

DRUGS (11)
  1. ARANESP [Concomitant]
     Active Substance: DARBEPOETIN ALFA
     Indication: PRODUCT USED FOR UNKNOWN INDICATION
     Dosage: 500 MCG, Q3W
     Route: 065
     Dates: start: 20190625
  2. HERCEPTIN [Concomitant]
     Active Substance: TRASTUZUMAB
     Dosage: 510 MG / 250 ML NACL 0.9%
     Route: 065
     Dates: start: 20180703
  3. TYVERB [Suspect]
     Active Substance: LAPATINIB
     Dosage: 3X250 MG, QD
     Route: 065
     Dates: start: 20190821
  4. PERJETA [Concomitant]
     Active Substance: PERTUZUMAB
     Indication: PRODUCT USED FOR UNKNOWN INDICATION
     Dosage: 840 MG, Q3W
     Route: 065
     Dates: start: 20180207
  5. PACLITAXEL. [Concomitant]
     Active Substance: PACLITAXEL
     Indication: PRODUCT USED FOR UNKNOWN INDICATION
     Dosage: 160 MG, Q3W
     Route: 065
     Dates: start: 20180207
  6. LUCRIN DEPO [Concomitant]
     Active Substance: LEUPROLIDE ACETATE
     Indication: PRODUCT USED FOR UNKNOWN INDICATION
     Dosage: UNK UKN
     Route: 058
     Dates: start: 20190604
  7. KADCYLA [Concomitant]
     Active Substance: ADO-TRASTUZUMAB EMTANSINE
     Indication: PRODUCT USED FOR UNKNOWN INDICATION
     Dosage: 320 MG, Q3W
     Route: 065
     Dates: start: 20180824
  8. TYVERB [Suspect]
     Active Substance: LAPATINIB
     Indication: PRODUCT USED FOR UNKNOWN INDICATION
     Dosage: 4X250 MG, QD
     Route: 065
     Dates: start: 20180813, end: 20180822
  9. HERCEPTIN [Concomitant]
     Active Substance: TRASTUZUMAB
     Indication: PRODUCT USED FOR UNKNOWN INDICATION
     Dosage: 600 MG, Q3W
     Route: 065
     Dates: start: 20180207
  10. HERCEPTIN [Concomitant]
     Active Substance: TRASTUZUMAB
     Dosage: 460 MG, Q3W
     Route: 065
  11. DEXAMETHASONE. [Concomitant]
     Active Substance: DEXAMETHASONE
     Indication: PRODUCT USED FOR UNKNOWN INDICATION
     Dosage: 8 MG, BID
     Route: 065
     Dates: start: 20190821

REACTIONS (3)
  - Hemiparesis [Unknown]
  - Consciousness fluctuating [Unknown]
  - Death [Fatal]

NARRATIVE: CASE EVENT DATE: 20190927
